FAERS Safety Report 5755582-4 (Version None)
Quarter: 2008Q2

REPORT INFORMATION
  Report Type: 
  Country: None (occurrence: None)
  Receive Date: 20080530
  Receipt Date: 20080530
  Transmission Date: 20081010
  Serious: Yes (Other)
  Sender: FDA-Public Use
  Company Number: None

PATIENT
  Sex: Female

DRUGS (4)
  1. AMOXICILLIN + CLAVULANATE POTASSIUM [Suspect]
     Indication: SINUSITIS
     Dosage: 875 MG -1 TABLET- DAILY PO
     Route: 048
     Dates: start: 20080507, end: 20080516
  2. EFFEXOR [Concomitant]
  3. DICYCLOMINE [Concomitant]
  4. ESTRACE [Concomitant]

REACTIONS (2)
  - HEPATITIS [None]
  - JAUNDICE CHOLESTATIC [None]
